FAERS Safety Report 6965142-5 (Version None)
Quarter: 2010Q3

REPORT INFORMATION
  Report Type: 
  Country: None (occurrence: None)
  Receive Date: 20100903
  Receipt Date: 20100827
  Transmission Date: 20110219
  Serious: Yes (Hospitalization)
  Sender: FDA-Public Use
  Company Number: FR-WYE-G05732410

PATIENT
  Sex: Female

DRUGS (1)
  1. EFFEXOR XR [Suspect]
     Indication: DEPRESSION
     Dosage: 37.5 MG 2 TIMES DAILY FROM AN UNSPEC. DATE TO 13-JAN-2010, THEN WAS UNKNOWN FROM 15-JAN-2010
     Route: 064

REACTIONS (5)
  - BREECH PRESENTATION [None]
  - DRUG EXPOSURE VIA BREAST MILK [None]
  - DRUG WITHDRAWAL SYNDROME NEONATAL [None]
  - MYOCLONUS [None]
  - PREMATURE BABY [None]
